FAERS Safety Report 17194196 (Version 1)
Quarter: 2019Q4

REPORT INFORMATION
  Report Type: Report from Study
  Country: US (occurrence: US)
  Receive Date: 20191224
  Receipt Date: 20191224
  Transmission Date: 20200122
  Serious: Yes (Hospitalization)
  Sender: FDA-Public Use
  Company Number: US-ROCHE-2498318

PATIENT
  Sex: Male

DRUGS (2)
  1. OCREVUS [Suspect]
     Active Substance: OCRELIZUMAB
     Indication: RELAPSING MULTIPLE SCLEROSIS
     Dosage: DISPENSE 2 QUANTITY OF 300 MG VIAL INFUSION?DATE OF TREATMENT: 18/JUN/2018, 02/JUL/2018, 26/NOV/2018
     Route: 065
     Dates: start: 20180618
  2. OCREVUS [Suspect]
     Active Substance: OCRELIZUMAB
     Dosage: DISPENSE 2 QUANTITY IN THE FORM OF 300 MG VIAL INFUSION
     Route: 065

REACTIONS (1)
  - Infection [Not Recovered/Not Resolved]
